FAERS Safety Report 19414394 (Version 1)
Quarter: 2021Q2

REPORT INFORMATION
  Report Type: Report from Study
  Country: US (occurrence: US)
  Receive Date: 20210614
  Receipt Date: 20210614
  Transmission Date: 20210717
  Serious: Yes (Other)
  Sender: FDA-Public Use
  Company Number: US-BAYER-2021-115670

PATIENT
  Age: 80 Year
  Sex: Male

DRUGS (1)
  1. NUBEQA [Suspect]
     Active Substance: DAROLUTAMIDE
     Indication: HORMONE-REFRACTORY PROSTATE CANCER
     Dosage: 300 MG, BID
     Route: 048
     Dates: end: 2021

REACTIONS (5)
  - Skin exfoliation [Recovered/Resolved]
  - Gait inability [None]
  - Fatigue [Recovered/Resolved]
  - Arthralgia [None]
  - Off label use [None]
